FAERS Safety Report 5314810-X (Version None)
Quarter: 2007Q2

REPORT INFORMATION
  Report Type: 
  Country: None (occurrence: None)
  Receive Date: 20070502
  Receipt Date: 20070430
  Transmission Date: 20071010
  Serious: Yes (Other)
  Sender: FDA-Public Use
  Company Number: 2007UW03782

PATIENT
  Age: 12 Year
  Sex: Male

DRUGS (4)
  1. SEROQUEL [Suspect]
     Indication: ATTENTION DEFICIT/HYPERACTIVITY DISORDER
     Route: 048
  2. SEROQUEL [Suspect]
     Indication: BIPOLAR DISORDER
     Route: 048
  3. DEPAKOTE [Concomitant]
  4. RISPERDAL [Concomitant]

REACTIONS (2)
  - INJURY [None]
  - THINKING ABNORMAL [None]
